FAERS Safety Report 13663484 (Version 1)
Quarter: 2017Q2

REPORT INFORMATION
  Report Type: Spontaneous
  Country: US (occurrence: US)
  Receive Date: 20170616
  Receipt Date: 20170616
  Transmission Date: 20170830
  Serious: No
  Sender: FDA-Public Use
  Company Number: None

PATIENT
  Age: 45 Year
  Sex: Female

DRUGS (1)
  1. OTREXUP [Suspect]
     Active Substance: METHOTREXATE
     Indication: RHEUMATOID ARTHRITIS
     Dosage: 10MG/.4ML ONCE A WEEK SUBCUTANEOUSLY
     Route: 058
     Dates: start: 20170531

REACTIONS (2)
  - Drug dose omission [None]
  - Device malfunction [None]

NARRATIVE: CASE EVENT DATE: 20170609
